FAERS Safety Report 8499522-6 (Version None)
Quarter: 2012Q2

REPORT INFORMATION
  Report Type: 
  Country: None (occurrence: None)
  Receive Date: 20120629
  Receipt Date: 20120615
  Transmission Date: 20120825
  Serious: Yes (Life-Threatening, Hospitalization, Other)
  Sender: FDA-Public Use
  Company Number: 2012P1044312

PATIENT
  Age: 12 Year
  Sex: Female
  Weight: 35 kg

DRUGS (1)
  1. FLECAINIDE ACETATE [Suspect]
     Indication: ATRIOVENTRICULAR BLOCK
     Dosage: 50 MG;TID;PO 50 MG;BID;   1500 MG;X1;
     Route: 048

REACTIONS (7)
  - HEADACHE [None]
  - ABDOMINAL DISCOMFORT [None]
  - HYPOTONIA [None]
  - GRAND MAL CONVULSION [None]
  - BLOOD PRESSURE DECREASED [None]
  - VISION BLURRED [None]
  - BLOOD POTASSIUM DECREASED [None]
